FAERS Safety Report 13033257 (Version 1)
Quarter: 2016Q4

REPORT INFORMATION
  Report Type: Spontaneous
  Country: IE (occurrence: IE)
  Receive Date: 20161216
  Receipt Date: 20161216
  Transmission Date: 20170207
  Serious: Yes (Other)
  Sender: FDA-Public Use
  Company Number: IE-UCBSA-2016047715

PATIENT
  Age: 14 Year
  Sex: Male

DRUGS (1)
  1. METHYLPHENIDATE HYDROCHLORIDE. [Suspect]
     Active Substance: METHYLPHENIDATE HYDROCHLORIDE
     Indication: ATTENTION DEFICIT/HYPERACTIVITY DISORDER
     Dosage: 30 MG, ONCE DAILY (QD)
     Route: 048
     Dates: start: 201606

REACTIONS (2)
  - Parasomnia [Not Recovered/Not Resolved]
  - Aggression [Not Recovered/Not Resolved]

NARRATIVE: CASE EVENT DATE: 201611
